FAERS Safety Report 4632815-9 (Version None)
Quarter: 2005Q2

REPORT INFORMATION
  Report Type: 
  Country: None (occurrence: None)
  Receive Date: 20050412
  Receipt Date: 20050405
  Transmission Date: 20051028
  Serious: Yes (Other)
  Sender: FDA-Public Use
  Company Number: 200512786US

PATIENT
  Sex: 0

DRUGS (1)
  1. ANZEMET [Suspect]
     Dosage: DOSE: UNK

REACTIONS (1)
  - COMPARTMENT SYNDROME [None]
